FAERS Safety Report 4316120-6 (Version None)
Quarter: 2004Q1

REPORT INFORMATION
  Report Type: 
  Country: None (occurrence: None)
  Receive Date: 20040310
  Receipt Date: 20040227
  Transmission Date: 20041129
  Serious: Yes (Hospitalization)
  Sender: FDA-Public Use
  Company Number: 2004014125

PATIENT
  Age: 65 Year
  Sex: Male
  Weight: 78 kg

DRUGS (9)
  1. GEMFIBROZIL [Suspect]
     Indication: ILL-DEFINED DISORDER
     Dosage: BID, ORAL
     Route: 048
     Dates: start: 20030115
  2. IRBESARTAN [Suspect]
     Indication: ILL-DEFINED DISORDER
     Dosage: ORAL
     Route: 048
     Dates: start: 20030210
  3. REPAGLINIDE (REPAGLINIDE) [Concomitant]
     Indication: ILL-DEFINED DISORDER
     Dosage: 6 MG (TID), ORAL
     Route: 048
  4. RILMENIDINE (RILMENIDINE) [Concomitant]
  5. ALFACALCIDOL (ALFACALCIDOL) [Concomitant]
  6. NIFEDIPINE [Concomitant]
  7. ALLOPURINOL [Concomitant]
  8. ACETYLSALICYLIC ACID SRT [Concomitant]
  9. TERAZOSIN (TERAZOSIN) [Concomitant]

REACTIONS (4)
  - DRUG INTERACTION [None]
  - FACIAL PALSY [None]
  - HYPOGLYCAEMIC COMA [None]
  - NERVOUS SYSTEM DISORDER [None]
